FAERS Safety Report 21058123 (Version 1)
Quarter: 2022Q3

REPORT INFORMATION
  Report Type: Spontaneous
  Country: RS (occurrence: RS)
  Receive Date: 20220708
  Receipt Date: 20220708
  Transmission Date: 20221027
  Serious: Yes (Other)
  Sender: FDA-Public Use
  Company Number: RS-NOVARTISPH-NVSC2022RS151664

PATIENT
  Age: 65 Year
  Sex: Female

DRUGS (6)
  1. METHOTREXATE [Suspect]
     Active Substance: METHOTREXATE
     Indication: Rheumatoid arthritis
     Dosage: UNK
     Route: 048
  2. FOLIC ACID [Concomitant]
     Active Substance: FOLIC ACID
     Indication: Product used for unknown indication
     Dosage: UNK
     Route: 065
  3. MELOXICAM [Concomitant]
     Active Substance: MELOXICAM
     Indication: Product used for unknown indication
     Dosage: UNK
     Route: 065
  4. SULFASALAZINE [Concomitant]
     Active Substance: SULFASALAZINE
     Indication: Product used for unknown indication
     Dosage: UNK
     Route: 065
  5. PRONISON [Concomitant]
     Active Substance: PREDNISONE
     Indication: Product used for unknown indication
     Dosage: UNK
     Route: 065
  6. PRONISON [Concomitant]
     Active Substance: PREDNISONE
     Dosage: UNK, 10/5 MG
     Route: 065

REACTIONS (7)
  - Cataract [Unknown]
  - Cerebrovascular disorder [Recovered/Resolved with Sequelae]
  - Arthralgia [Unknown]
  - Joint swelling [Unknown]
  - Escherichia urinary tract infection [Unknown]
  - Atrial septal defect [Unknown]
  - Asthenia [Unknown]

NARRATIVE: CASE EVENT DATE: 20071001
